FAERS Safety Report 7183773-7 (Version None)
Quarter: 2010Q4

REPORT INFORMATION
  Report Type: 
  Country: None (occurrence: None)
  Receive Date: 20101222
  Receipt Date: 20101206
  Transmission Date: 20110411
  Serious: No
  Sender: FDA-Public Use
  Company Number: US-B.I. PHARMACEUTICALS,INC./RIDGEFIELD-2010-BP-13911BP

PATIENT
  Age: 88 Year
  Sex: Male

DRUGS (6)
  1. PRADAXA [Suspect]
     Indication: ATRIAL FIBRILLATION
     Dosage: 300 MG
     Route: 048
     Dates: start: 20101204
  2. PRILOSEC [Concomitant]
     Indication: GASTRIC DISORDER
  3. FISH OIL [Concomitant]
     Indication: PROPHYLAXIS
  4. VITAMINS [Concomitant]
     Indication: PROPHYLAXIS
  5. BLOOD PRESSURE MEDICATION [Concomitant]
     Indication: HYPERTENSION
  6. COUMADIN [Concomitant]

REACTIONS (2)
  - CHEST DISCOMFORT [None]
  - FLATULENCE [None]
